FAERS Safety Report 4621273-6 (Version None)
Quarter: 2005Q1

REPORT INFORMATION
  Report Type: 
  Country: None (occurrence: None)
  Receive Date: 20050329
  Receipt Date: 20050314
  Transmission Date: 20050727
  Serious: Yes (Hospitalization)
  Sender: FDA-Public Use
  Company Number: US-JNJFOC-20050303668

PATIENT
  Sex: Male
  Weight: 77.11 kg

DRUGS (7)
  1. OXYBUTYNIN HYDROCHLORIDE [Suspect]
     Route: 049
  2. OXYBUTYNIN HYDROCHLORIDE [Suspect]
     Indication: URINARY TRACT DISORDER
     Route: 049
  3. FLOMAX [Suspect]
     Indication: URINARY TRACT DISORDER
     Route: 049
  4. COUMADIN [Concomitant]
     Indication: PROPHYLAXIS
  5. CENTRUM [Concomitant]
     Route: 049
  6. CENTRUM [Concomitant]
     Indication: GENERAL PHYSICAL CONDITION
     Route: 049
  7. OCCUPLEX [Concomitant]
     Indication: GENERAL PHYSICAL CONDITION
     Route: 049

REACTIONS (1)
  - INTESTINAL OBSTRUCTION [None]
